FAERS Safety Report 10970901 (Version 1)
Quarter: 2015Q1

REPORT INFORMATION
  Report Type: Report from Study
  Country: US (occurrence: US)
  Receive Date: 20150331
  Receipt Date: 20150331
  Transmission Date: 20150721
  Serious: Yes (Hospitalization)
  Sender: FDA-Public Use
  Company Number: US-JNJFOC-20150321072

PATIENT
  Age: 9 Year
  Sex: Male

DRUGS (11)
  1. CALCIUM [Concomitant]
     Active Substance: CALCIUM
     Route: 065
  2. PREDNISONE. [Concomitant]
     Active Substance: PREDNISONE
     Route: 065
  3. 5-ASA [Concomitant]
     Active Substance: MESALAMINE
     Route: 048
  4. VITAMIN D [Concomitant]
     Active Substance: CHOLECALCIFEROL
     Route: 065
  5. FERROUS SULFATE [Concomitant]
     Active Substance: FERROUS SULFATE\FERROUS SULFATE, DRIED
     Route: 065
  6. HYOSCYAMINE [Concomitant]
     Active Substance: HYOSCYAMINE
     Route: 065
  7. REMICADE [Suspect]
     Active Substance: INFLIXIMAB
     Indication: CROHN^S DISEASE
     Route: 042
     Dates: start: 20120127, end: 20131227
  8. HUMIRA [Concomitant]
     Active Substance: ADALIMUMAB
     Route: 065
     Dates: start: 201408
  9. METHOTREXATE [Concomitant]
     Active Substance: METHOTREXATE
     Route: 065
  10. HUMIRA [Concomitant]
     Active Substance: ADALIMUMAB
     Route: 065
  11. OMEPRAZOLE. [Concomitant]
     Active Substance: OMEPRAZOLE
     Route: 065

REACTIONS (1)
  - Crohn^s disease [Recovered/Resolved]

NARRATIVE: CASE EVENT DATE: 201409
